FAERS Safety Report 22657485 (Version 1)
Quarter: 2023Q2

REPORT INFORMATION
  Report Type: Spontaneous
  Country: US (occurrence: US)
  Receive Date: 20230630
  Receipt Date: 20230630
  Transmission Date: 20230721
  Serious: No
  Sender: FDA-Public Use
  Company Number: US-drreddys-SPO/USA/23/0165433

PATIENT
  Age: 26 Year
  Sex: Female

DRUGS (2)
  1. ACCUTANE [Suspect]
     Active Substance: ISOTRETINOIN
     Indication: Product used for unknown indication
     Dosage: THE PATIENT ONLY TOOK ONCE A DAY AND 2 PILLS THE NEXT DAY, ONE PILL AFTER THE NEXT, AND 2 PILLS AFTE
     Dates: start: 20221201
  2. ACCUTANE [Suspect]
     Active Substance: ISOTRETINOIN
     Dosage: THE PATIENT ONLY TOOK ONCE A DAY AND 2 PILLS THE NEXT DAY, ONE PILL AFTER THE NEXT, AND 2 PILLS AFTE
     Dates: end: 20230501

REACTIONS (3)
  - Alopecia [Unknown]
  - Incorrect dose administered [Unknown]
  - Inappropriate schedule of product administration [Unknown]

NARRATIVE: CASE EVENT DATE: 20230516
